FAERS Safety Report 15793444 (Version 1)
Quarter: 2019Q1

REPORT INFORMATION
  Report Type: Spontaneous
  Country: US (occurrence: US)
  Receive Date: 20190107
  Receipt Date: 20190107
  Transmission Date: 20190417
  Serious: No
  Sender: FDA-Public Use
  Company Number: US-PFIZER INC-2016372855

PATIENT
  Age: 59 Year
  Sex: Female
  Weight: 99.77 kg

DRUGS (23)
  1. ESTRACE [Concomitant]
     Active Substance: ESTRADIOL
     Dosage: 2 G, CYCLIC, (NIGHTLY FOR 1 WEEK THEN 2 G EVERY OTHER NIGHT FOR 1 WEEK THEN WEEKLY THEREAFTER)
     Route: 067
     Dates: start: 20140519
  2. HYDROXYZINE HCL [Concomitant]
     Active Substance: HYDROXYZINE HYDROCHLORIDE
     Dosage: 25 MG, AS NEEDED (3 TIMES DAILY)
     Route: 048
     Dates: start: 20160114
  3. TRAMADOL HCL [Concomitant]
     Active Substance: TRAMADOL HYDROCHLORIDE
     Indication: PAIN
     Dosage: 50 MG, AS NEEDED (ONE TO TWO TABLETS EVERY 6 HOURS)
     Route: 048
     Dates: start: 20141124
  4. LYRICA [Suspect]
     Active Substance: PREGABALIN
     Indication: DIABETIC NEUROPATHY
  5. FLUTICASONE PROPIONATE. [Concomitant]
     Active Substance: FLUTICASONE PROPIONATE
     Dosage: 2 DF, DAILY (IN EACH NOSTRIL ONCE)
     Route: 045
     Dates: start: 20150319
  6. MECLIZINE HCL [Concomitant]
     Active Substance: MECLIZINE HYDROCHLORIDE
     Dosage: 25 MG (1 TABLET), AS NEEDED (3 TIMES DAILY)
     Route: 048
  7. OMEPRAZOLE. [Concomitant]
     Active Substance: OMEPRAZOLE
     Dosage: 40 MG, DAILY
     Route: 048
     Dates: start: 20160802
  8. ASPIRIN 81 [Concomitant]
     Active Substance: ASPIRIN
     Dosage: 81 MG, DAILY
     Route: 048
  9. COLACE [Concomitant]
     Active Substance: DOCUSATE SODIUM
     Dosage: 100 MG, TWICE DAILY
     Route: 048
     Dates: start: 20160518
  10. FISH OIL [Concomitant]
     Active Substance: FISH OIL
     Dosage: 1200 MG, UNK
     Route: 048
  11. LACTULOSE. [Concomitant]
     Active Substance: LACTULOSE
     Indication: CONSTIPATION
     Dosage: 15 TO 30 ML AS NEEDED (ONCE DAILY)
     Route: 048
     Dates: start: 20141218
  12. VITAMIN D [Concomitant]
     Active Substance: CHOLECALCIFEROL
     Dosage: 2000 IU, ONCE DAILY
     Route: 048
     Dates: start: 20151208
  13. LYRICA [Suspect]
     Active Substance: PREGABALIN
     Indication: MUSCULOSKELETAL DISORDER
  14. CITALOPRAM HYDROBROMIDE. [Concomitant]
     Active Substance: CITALOPRAM HYDROBROMIDE
     Dosage: 20 MG, DAILY (ONCE DAILY)
     Route: 048
     Dates: start: 20140416
  15. RELAGARD [Concomitant]
     Dosage: UNK, ONCE DAILY (AT BEDTIME)
     Route: 067
  16. ROPINIROLE HCL [Concomitant]
     Active Substance: ROPINIROLE HYDROCHLORIDE
     Dosage: 0.5 MG, ONCE DAILY (AT BEDTIME)
     Route: 048
     Dates: start: 20151207
  17. ZOLPIDEM TARTATE [Concomitant]
     Active Substance: ZOLPIDEM TARTRATE
     Dosage: 10 MG, ONCE DAILY (AT BEDTIME)
     Route: 048
     Dates: start: 20140416
  18. CELEBREX [Concomitant]
     Active Substance: CELECOXIB
     Dosage: 200 MG, ONCE DAILY
  19. LYRICA [Suspect]
     Active Substance: PREGABALIN
     Indication: POLYARTHRITIS
     Dosage: 150 MG, 2X/DAY
     Route: 048
  20. LOSARTAN POTASSIUM. [Concomitant]
     Active Substance: LOSARTAN POTASSIUM
     Dosage: 50 MG (1 TABLET), DAILY (AS DIRECTED)
     Route: 048
     Dates: start: 20160804
  21. METFORMIN HCL [Concomitant]
     Active Substance: METFORMIN HYDROCHLORIDE
     Dosage: 500 MG, TWICE DAILY (WITH MEALS)
     Route: 048
     Dates: start: 20161203
  22. CETIRIZINE HCL [Concomitant]
     Active Substance: CETIRIZINE HYDROCHLORIDE
     Dosage: 10 MG, ONCE DAILY (AT BEDTIME)
     Route: 048
     Dates: start: 20150319
  23. OXYCODONE HYDROCHLORIDE. [Concomitant]
     Active Substance: OXYCODONE HYDROCHLORIDE
     Indication: PAIN
     Dosage: 15 MG, AS NEEDED (1 TO 2 TABLETS EVERY 6 HOURS)
     Route: 048
     Dates: start: 20150915

REACTIONS (1)
  - Limb discomfort [Unknown]
